FAERS Safety Report 4727929-9 (Version None)
Quarter: 2005Q3

REPORT INFORMATION
  Report Type: 
  Country: None (occurrence: None)
  Receive Date: 20050725
  Receipt Date: 20050405
  Transmission Date: 20060218
  Serious: No
  Sender: FDA-Public Use
  Company Number: US_0504115984

PATIENT
  Age: 20 Year
  Sex: Female
  Weight: 54 kg

DRUGS (4)
  1. STRATTERA [Suspect]
     Indication: ATTENTION DEFICIT/HYPERACTIVITY DISORDER
     Dates: start: 20050222, end: 20050302
  2. MIRALAX [Concomitant]
  3. PROTONIX [Concomitant]
  4. CALTRATE PLUS [Concomitant]

REACTIONS (2)
  - PULSE ABNORMAL [None]
  - TACHYCARDIA [None]
